FAERS Safety Report 7255705-4 (Version None)
Quarter: 2011Q1

REPORT INFORMATION
  Report Type: 
  Country: None (occurrence: None)
  Receive Date: 20110129
  Receipt Date: 20100824
  Transmission Date: 20110831
  Serious: No
  Sender: FDA-Public Use
  Company Number: US-ABBOTT-10P-163-0666986-00

PATIENT
  Sex: Female
  Weight: 88.53 kg

DRUGS (7)
  1. WELLBUTRIN [Concomitant]
     Indication: DEPRESSION
  2. HUMIRA [Suspect]
     Indication: PSORIATIC ARTHROPATHY
     Dates: start: 20100803
  3. CYTOMEL [Concomitant]
     Indication: HYPOTHYROIDISM
  4. ZOLOFT [Concomitant]
     Indication: DEPRESSION
  5. ATIVAN [Concomitant]
     Indication: ANXIETY
  6. LIDEX [Concomitant]
     Indication: PSORIATIC ARTHROPATHY
  7. LEVOXYL [Concomitant]
     Indication: HYPOTHYROIDISM

REACTIONS (6)
  - VITAMIN D DECREASED [None]
  - MENSTRUATION DELAYED [None]
  - INJECTION SITE PAIN [None]
  - MALAISE [None]
  - ARTHRALGIA [None]
  - LETHARGY [None]
